FAERS Safety Report 4498912-6 (Version None)
Quarter: 2004Q4

REPORT INFORMATION
  Report Type: 
  Country: None (occurrence: None)
  Receive Date: 20041110
  Receipt Date: 20041110
  Transmission Date: 20050328
  Serious: No
  Sender: FDA-Public Use
  Company Number: None

PATIENT
  Age: 88 Year
  Sex: Male

DRUGS (1)
  1. CLOPIDOGREL [Suspect]
     Indication: CEREBROVASCULAR ACCIDENT
     Dosage: 75 MG PO DAILY
     Route: 048

REACTIONS (4)
  - CEREBRAL HAEMORRHAGE [None]
  - DISORIENTATION [None]
  - MENTAL STATUS CHANGES [None]
  - SPEECH DISORDER [None]
